FAERS Safety Report 10802017 (Version 1)
Quarter: 2015Q1

REPORT INFORMATION
  Report Type: Spontaneous
  Country: US (occurrence: US)
  Receive Date: 20150217
  Receipt Date: 20150217
  Transmission Date: 20150721
  Serious: Yes (Death)
  Sender: FDA-Public Use
  Company Number: US-BANPHARM-20153430

PATIENT
  Age: 28 Year
  Sex: Female

DRUGS (8)
  1. SERTRALINE [Suspect]
     Active Substance: SERTRALINE HYDROCHLORIDE
  2. LIDOCAINE HYDROCHLORIDE UNKNOWN PRODUCT [Suspect]
     Active Substance: LIDOCAINE HYDROCHLORIDE
  3. CARBON MONOXIDE [Suspect]
     Active Substance: CARBON MONOXIDE
     Route: 055
  4. SMOKE [Suspect]
     Active Substance: UNSPECIFIED INGREDIENT
  5. COTININE [Suspect]
     Active Substance: COTININE
  6. CAFFEINE. [Suspect]
     Active Substance: CAFFEINE
  7. AMITRIPTYLINE [Suspect]
     Active Substance: AMITRIPTYLINE
  8. METOPROLOL [Suspect]
     Active Substance: METOPROLOL

REACTIONS (1)
  - Death [Fatal]
